FAERS Safety Report 5522202-3 (Version None)
Quarter: 2007Q4

REPORT INFORMATION
  Report Type: 
  Country: None (occurrence: None)
  Receive Date: 20071120
  Receipt Date: 20071116
  Transmission Date: 20080405
  Serious: Yes (Other)
  Sender: FDA-Public Use
  Company Number: B0495648A

PATIENT
  Age: 62 Year
  Sex: Female

DRUGS (6)
  1. SERETIDE [Suspect]
     Indication: CHRONIC OBSTRUCTIVE PULMONARY DISEASE
     Route: 055
     Dates: start: 20071019, end: 20071022
  2. ATORVASTATIN CALCIUM [Concomitant]
     Route: 048
  3. VENTOLIN [Concomitant]
     Dosage: 100MCG TWICE PER DAY
     Route: 055
  4. GTN-S [Concomitant]
  5. BISOPROLOL FUMARATE [Concomitant]
  6. ASPIRIN [Concomitant]

REACTIONS (1)
  - ANGINA PECTORIS [None]
